FAERS Safety Report 8756712 (Version 1)
Quarter: 2012Q4

REPORT INFORMATION
  Report Type: 
  Country: BR (occurrence: BR)
  Receive Date: 20120828
  Receipt Date: 20120828
  Transmission Date: 20130627
  Serious: Yes (Hospitalization)
  Sender: FDA-Public Use
  Company Number: PHHY2012BR073736

PATIENT
  Age: 78 Year
  Sex: Male

DRUGS (2)
  1. FORASEQ [Suspect]
     Indication: DYSPNOEA
     Dosage: 1 DF, BID
     Dates: start: 20120731
  2. FORASEQ [Suspect]
     Dosage: 1 DF, TID

REACTIONS (5)
  - Cardiac disorder [Not Recovered/Not Resolved]
  - Lung disorder [Not Recovered/Not Resolved]
  - Dysgeusia [Not Recovered/Not Resolved]
  - Device malfunction [Unknown]
  - Drug ineffective [Not Recovered/Not Resolved]
